FAERS Safety Report 19590730 (Version 1)
Quarter: 2021Q3

REPORT INFORMATION
  Report Type: Spontaneous
  Country: US (occurrence: US)
  Receive Date: 20210721
  Receipt Date: 20210721
  Transmission Date: 20211014
  Serious: No
  Sender: FDA-Public Use
  Company Number: US-SA-2021SA234374

PATIENT
  Age: 48 Year
  Sex: Male

DRUGS (9)
  1. PFIZER?BIONTECH COVID?19 VACCINE [Suspect]
     Active Substance: TOZINAMERAN
     Indication: COVID-19 IMMUNISATION
  2. GABAPENTIN. [Concomitant]
     Active Substance: GABAPENTIN
  3. AZELASTINE. [Concomitant]
     Active Substance: AZELASTINE HYDROCHLORIDE
  4. ADDERALL [Concomitant]
     Active Substance: AMPHETAMINE ASPARTATE\AMPHETAMINE SULFATE\DEXTROAMPHETAMINE SACCHARATE\DEXTROAMPHETAMINE SULFATE
  5. AUBAGIO [Suspect]
     Active Substance: TERIFLUNOMIDE
     Indication: MULTIPLE SCLEROSIS
     Route: 048
  6. NORCO [Concomitant]
     Active Substance: ACETAMINOPHEN\HYDROCODONE BITARTRATE
  7. PROTONIX [OMEPRAZOLE] [Concomitant]
     Active Substance: OMEPRAZOLE
  8. FLONASE [MOMETASONE FUROATE] [Concomitant]
     Active Substance: MOMETASONE FUROATE
  9. SINGULAIR [Concomitant]
     Active Substance: MONTELUKAST SODIUM

REACTIONS (6)
  - Pyrexia [Recovered/Resolved]
  - Pain [Recovered/Resolved]
  - Headache [Recovered/Resolved]
  - Memory impairment [Recovered/Resolved]
  - SARS-CoV-2 antibody test negative [Recovered/Resolved]
  - Condition aggravated [Recovered/Resolved]

NARRATIVE: CASE EVENT DATE: 20210318
